FAERS Safety Report 5847676-X (Version None)
Quarter: 2008Q3

REPORT INFORMATION
  Report Type: 
  Country: None (occurrence: None)
  Receive Date: 20080818
  Receipt Date: 20080808
  Transmission Date: 20090109
  Serious: Yes (Hospitalization, Other)
  Sender: FDA-Public Use
  Company Number: US-AMGEN-QUU267983

PATIENT
  Sex: Female

DRUGS (5)
  1. ENBREL [Suspect]
     Indication: RHEUMATOID ARTHRITIS
     Route: 058
     Dates: start: 20041201
  2. PLAQUENIL [Concomitant]
     Route: 048
  3. LODINE [Concomitant]
  4. PERCOCET [Concomitant]
  5. ZANAFLEX [Concomitant]

REACTIONS (9)
  - BACK PAIN [None]
  - DEVICE FAILURE [None]
  - DRUG ERUPTION [None]
  - KNEE ARTHROPLASTY [None]
  - PAIN IN EXTREMITY [None]
  - PARAESTHESIA [None]
  - PROCEDURAL PAIN [None]
  - RHEUMATOID ARTHRITIS [None]
  - ROTATOR CUFF SYNDROME [None]
